FAERS Safety Report 5842499-X (Version None)
Quarter: 2008Q3

REPORT INFORMATION
  Report Type: 
  Country: None (occurrence: None)
  Receive Date: 20080812
  Receipt Date: 20080731
  Transmission Date: 20090109
  Serious: Yes (Death, Life-Threatening, Hospitalization, Other)
  Sender: FDA-Public Use
  Company Number: JP-PFIZER INC-2008055073

PATIENT
  Sex: Male
  Weight: 55 kg

DRUGS (4)
  1. VFEND [Suspect]
     Indication: BRONCHOPULMONARY ASPERGILLOSIS
     Dosage: DAILY DOSE:400MG
     Route: 048
     Dates: start: 20080408, end: 20080422
  2. VFEND [Suspect]
     Dosage: DAILY DOSE:400MG
     Route: 048
     Dates: start: 20080618, end: 20080618
  3. VFEND [Suspect]
     Dosage: DAILY DOSE:400MG
     Route: 048
     Dates: start: 20080627, end: 20080629
  4. SOLU-MEDROL [Suspect]
     Route: 042

REACTIONS (6)
  - DYSPNOEA [None]
  - GRAFT VERSUS HOST DISEASE [None]
  - HEPATIC ENZYME INCREASED [None]
  - INTERSTITIAL LUNG DISEASE [None]
  - RECTAL HAEMORRHAGE [None]
  - RESPIRATORY TRACT INFECTION [None]
